FAERS Safety Report 11068555 (Version 6)
Quarter: 2016Q2

REPORT INFORMATION
  Report Type: Spontaneous
  Country: US (occurrence: US)
  Receive Date: 20150427
  Receipt Date: 20160617
  Transmission Date: 20160815
  Serious: Yes (Other)
  Sender: FDA-Public Use
  Company Number: US-PFIZER INC-2015137324

PATIENT
  Age: 57 Year
  Sex: Female

DRUGS (4)
  1. IBRANCE [Suspect]
     Active Substance: PALBOCICLIB
     Dosage: 100 MG, CYCLIC (ONCE DAILY WITH FOOD FOR 21 DAYS THEN 7 DAYS OFF)
     Route: 048
     Dates: start: 20150413
  2. IBRANCE [Suspect]
     Active Substance: PALBOCICLIB
     Indication: BREAST CANCER METASTATIC
     Dosage: 125 MG,CYCLIC (ONCE DAILY WITH FOOD FOR 21 DAYS THEN 7 DAYS OFF)
     Route: 048
     Dates: start: 20150323
  3. IBRANCE [Suspect]
     Active Substance: PALBOCICLIB
     Dosage: 75 MG, CYCLIC (DAILY, FOR 21 DAYS AND 7 DAYS OFF)
     Route: 048
     Dates: start: 20150619
  4. LETROZOLE. [Suspect]
     Active Substance: LETROZOLE
     Dosage: 2.5 MG, UNK
     Dates: start: 20150412

REACTIONS (16)
  - Fatigue [Unknown]
  - White blood cell count decreased [Unknown]
  - Memory impairment [Unknown]
  - Peripheral swelling [Unknown]
  - Insomnia [Unknown]
  - Nausea [Unknown]
  - Pain in extremity [Unknown]
  - Abdominal pain [Unknown]
  - Pain in extremity [Unknown]
  - Depression [Unknown]
  - Hypoaesthesia [Unknown]
  - Thrombosis [Unknown]
  - Constipation [Unknown]
  - Anxiety [Unknown]
  - Abdominal distension [Unknown]
  - Cystitis [Not Recovered/Not Resolved]

NARRATIVE: CASE EVENT DATE: 2015
